FAERS Safety Report 4609363-5 (Version None)
Quarter: 2005Q1

REPORT INFORMATION
  Report Type: 
  Country: None (occurrence: None)
  Receive Date: 20050314
  Receipt Date: 20050301
  Transmission Date: 20050727
  Serious: Yes (Hospitalization)
  Sender: FDA-Public Use
  Company Number: 2004097068

PATIENT
  Age: 53 Year
  Sex: Male

DRUGS (5)
  1. GABAPENTIN [Suspect]
     Indication: NEUROPATHIC PAIN
     Dosage: 900 MG (300 MG, 3 IN 1 D), UNKNOWN
     Route: 065
     Dates: start: 20010701
  2. THERAPEUTIC RADIOPHARMACEUTICALS (THERAPEUTIC RADIOPHARMACEUTICALS) [Concomitant]
  3. LANSOPRAZOLE [Concomitant]
  4. MORPHINE SULFATE [Concomitant]
  5. SENNA (SENNA) [Concomitant]

REACTIONS (5)
  - AGRANULOCYTOSIS [None]
  - LYMPHADENOPATHY [None]
  - NEUTROPENIC SEPSIS [None]
  - UPPER RESPIRATORY TRACT INFECTION [None]
  - WHITE BLOOD CELL COUNT DECREASED [None]
